FAERS Safety Report 7803567-6 (Version None)
Quarter: 2011Q4

REPORT INFORMATION
  Report Type: 
  Country: None (occurrence: None)
  Receive Date: 20111009
  Receipt Date: 20110926
  Transmission Date: 20120403
  Serious: Yes (Death, Hospitalization)
  Sender: FDA-Public Use
  Company Number: DK-MYLANLABS-2011S1020183

PATIENT
  Age: 95 Year
  Sex: Female

DRUGS (7)
  1. PANTOPRAZOLE [Concomitant]
     Indication: PRODUCT USED FOR UNKNOWN INDICATION
     Dates: start: 20080528, end: 20080606
  2. BENDROFLUMETHIAZIDE W/POTASSIUM CHLORIDE [Concomitant]
     Indication: PRODUCT USED FOR UNKNOWN INDICATION
     Route: 048
     Dates: start: 20060218, end: 20080606
  3. INDOMETACIN SODIUM TRIHYDRATE [Concomitant]
     Indication: PRODUCT USED FOR UNKNOWN INDICATION
     Dosage: 25 TO 75 MG
     Dates: start: 19800101
  4. BISACODYL [Concomitant]
     Indication: PRODUCT USED FOR UNKNOWN INDICATION
  5. IBUPROFEN [Suspect]
     Indication: PAIN
     Dates: start: 20030101, end: 20080101
  6. MORPHINE SULFATE [Concomitant]
     Indication: PRODUCT USED FOR UNKNOWN INDICATION
     Dates: start: 20080430, end: 20080606
  7. UNIKALK BASIC [Concomitant]
     Indication: PRODUCT USED FOR UNKNOWN INDICATION

REACTIONS (13)
  - FLUID INTAKE REDUCED [None]
  - MALAISE [None]
  - FALL [None]
  - HYPOPHAGIA [None]
  - VOMITING [None]
  - GASTRIC ULCER [None]
  - NAUSEA [None]
  - CONSTIPATION [None]
  - DEHYDRATION [None]
  - ATRIAL FIBRILLATION [None]
  - URINARY TRACT INFECTION [None]
  - DUODENAL ULCER [None]
  - CARDIAC FAILURE [None]
